FAERS Safety Report 14655953 (Version 1)
Quarter: 2018Q1

REPORT INFORMATION
  Report Type: Spontaneous
  Country: US (occurrence: US)
  Receive Date: 20180319
  Receipt Date: 20180319
  Transmission Date: 20180509
  Serious: Yes (Hospitalization)
  Sender: FDA-Public Use
  Company Number: US-SA-2018SA065229

PATIENT
  Age: 64 Year
  Sex: Male

DRUGS (1)
  1. AUBAGIO [Suspect]
     Active Substance: TERIFLUNOMIDE
     Indication: MULTIPLE SCLEROSIS
     Route: 048
     Dates: start: 20171212

REACTIONS (7)
  - Blood bilirubin increased [Recovering/Resolving]
  - Liver function test abnormal [Unknown]
  - Alanine aminotransferase increased [Unknown]
  - Aspartate aminotransferase increased [Recovering/Resolving]
  - Hospitalisation [Not Recovered/Not Resolved]
  - Blood alkaline phosphatase increased [Unknown]
  - Yellow skin [Unknown]
